FAERS Safety Report 6760951-X (Version None)
Quarter: 2010Q2

REPORT INFORMATION
  Report Type: 
  Country: None (occurrence: None)
  Receive Date: 20100608
  Receipt Date: 20100602
  Transmission Date: 20101027
  Serious: Yes (Hospitalization)
  Sender: FDA-Public Use
  Company Number: JP-ELI_LILLY_AND_COMPANY-JP201006000419

PATIENT
  Age: 65 Year
  Sex: Male

DRUGS (3)
  1. ALIMTA [Suspect]
     Route: 042
  2. FOLIC ACID [Concomitant]
     Route: 048
  3. VITAMIN B-12 [Concomitant]
     Route: 030

REACTIONS (1)
  - HYPONATRAEMIA [None]
